FAERS Safety Report 19847716 (Version 1)
Quarter: 2021Q3

REPORT INFORMATION
  Report Type: Spontaneous
  Country: GB (occurrence: GB)
  Receive Date: 20210917
  Receipt Date: 20210917
  Transmission Date: 20211014
  Serious: Yes (Other)
  Sender: FDA-Public Use
  Company Number: GB-JAZZ-2021-GB-017246

PATIENT
  Age: 18 Year
  Sex: Female

DRUGS (2)
  1. DEXAMFETAMINE [Concomitant]
     Active Substance: DEXTROAMPHETAMINE
     Indication: PRODUCT USED FOR UNKNOWN INDICATION
  2. XYREM [Suspect]
     Active Substance: SODIUM OXYBATE
     Indication: NARCOLEPSY
     Dosage: 9 GRAM PER DAY
     Route: 048
     Dates: start: 2012, end: 20210907

REACTIONS (1)
  - Disinhibition [Unknown]

NARRATIVE: CASE EVENT DATE: 2018
